FAERS Safety Report 7476372-0 (Version None)
Quarter: 2011Q2

REPORT INFORMATION
  Report Type: 
  Country: None (occurrence: None)
  Receive Date: 20110512
  Receipt Date: 20110509
  Transmission Date: 20111010
  Serious: Yes (Congenital Anomaly)
  Sender: FDA-Public Use
  Company Number: A0926480A

PATIENT
  Sex: Female

DRUGS (6)
  1. KALETRA [Suspect]
     Indication: ANTIVIRAL TREATMENT
     Dosage: 4TAB PER DAY
     Route: 064
     Dates: end: 20110228
  2. RETROVIR [Concomitant]
     Dosage: 1MGKM PER DAY
     Route: 064
     Dates: start: 20110317, end: 20110317
  3. KALETRA [Suspect]
     Dosage: 6TAB PER DAY
     Route: 064
     Dates: end: 20110317
  4. MARIJUANA [Concomitant]
  5. COMBIVIR [Suspect]
     Indication: ANTIVIRAL TREATMENT
     Dosage: 2TAB PER DAY
     Route: 064
  6. RETROVIR [Concomitant]
     Indication: ANTIVIRAL TREATMENT
     Dosage: 2MGKH PER DAY
     Route: 064
     Dates: start: 20110317, end: 20110317

REACTIONS (4)
  - ILL-DEFINED DISORDER [None]
  - HEART DISEASE CONGENITAL [None]
  - TRISOMY 21 [None]
  - DRUG EXPOSURE DURING PREGNANCY [None]
